FAERS Safety Report 8184497-X (Version None)
Quarter: 2012Q1

REPORT INFORMATION
  Report Type: 
  Country: None (occurrence: None)
  Receive Date: 20120305
  Receipt Date: 20120223
  Transmission Date: 20120608
  Serious: Yes (Other)
  Sender: FDA-Public Use
  Company Number: JP-ROCHE-1045252

PATIENT
  Sex: Male

DRUGS (16)
  1. ASPIRIN [Concomitant]
     Dates: start: 20010201
  2. RANIBIZUMAB [Suspect]
     Dates: start: 20100728
  3. RANIBIZUMAB [Suspect]
     Dates: start: 20101020
  4. THEOPHYLLINE [Concomitant]
  5. ASPARA K [Concomitant]
     Dates: start: 20010101
  6. GASTROM [Concomitant]
  7. WARFARIN SODIUM [Concomitant]
     Dates: start: 19990301
  8. MUCODYNE [Concomitant]
  9. RANIBIZUMAB [Suspect]
     Dates: start: 20100304
  10. LANIRAPID [Concomitant]
  11. RANIBIZUMAB [Suspect]
     Indication: AGE-RELATED MACULAR DEGENERATION
     Route: 050
     Dates: start: 20100105
  12. RANIBIZUMAB [Suspect]
     Dates: start: 20100527
  13. RANIBIZUMAB [Suspect]
     Dates: start: 20100203
  14. RANIBIZUMAB [Suspect]
     Dates: start: 20100630
  15. VISUDYNE [Concomitant]
  16. RABEPRAZOLE SODIUM [Concomitant]
     Dates: start: 20030601

REACTIONS (2)
  - EMPHYSEMA [None]
  - PNEUMONIA [None]
